FAERS Safety Report 9777619 (Version 3)
Quarter: 2014Q1

REPORT INFORMATION
  Report Type: Spontaneous
  Country: US (occurrence: US)
  Receive Date: 20131222
  Receipt Date: 20140106
  Transmission Date: 20141002
  Serious: Yes (Other)
  Sender: FDA-Public Use
  Company Number: US-ROCHE-1103315

PATIENT
  Age: 27 Year
  Sex: Female
  Weight: 54.48 kg

DRUGS (2)
  1. ACTEMRA [Suspect]
     Indication: RHEUMATOID ARTHRITIS
     Dosage: DOSE: 4 MG/KG?MOST RECENT DOSE RECEIVED ON 11/DEC/2013
     Route: 042
     Dates: start: 20131211
  2. PREDNISONE [Concomitant]
     Route: 048

REACTIONS (3)
  - Fatigue [Recovered/Resolved]
  - Dizziness [Recovering/Resolving]
  - Blood pressure increased [Recovered/Resolved]
